FAERS Safety Report 7100921-5 (Version None)
Quarter: 2010Q4

REPORT INFORMATION
  Report Type: 
  Country: None (occurrence: None)
  Receive Date: 20101113
  Receipt Date: 20010729
  Transmission Date: 20110411
  Serious: No
  Sender: FDA-Public Use
  Company Number: US-ALLERGAN-1004241US

PATIENT
  Sex: Female

DRUGS (5)
  1. BOTOX COSMETIC [Suspect]
     Indication: SKIN WRINKLING
     Dosage: 15 UNITS, SINGLE
     Route: 030
     Dates: start: 20100301, end: 20100301
  2. LOPRESSOR [Concomitant]
  3. LAMICTAL [Concomitant]
  4. LEXAPRO [Concomitant]
  5. VITAMIN D [Concomitant]
     Dosage: UNK

REACTIONS (2)
  - EYELID PTOSIS [None]
  - WRONG TECHNIQUE IN DRUG USAGE PROCESS [None]
